FAERS Safety Report 26046517 (Version 4)
Quarter: 2025Q4

REPORT INFORMATION
  Report Type: Spontaneous
  Country: US (occurrence: US)
  Receive Date: 20251114
  Receipt Date: 20251205
  Transmission Date: 20260117
  Serious: Yes (Life-Threatening, Hospitalization)
  Sender: ASTELLAS
  Company Number: US-ASTELLAS-2025-AER-063641

PATIENT
  Age: 49 Year
  Sex: Male
  Weight: 85.1 kg

DRUGS (1)
  1. ISAVUCONAZOLE [Suspect]
     Active Substance: ISAVUCONAZOLE
     Indication: Bronchopulmonary aspergillosis
     Route: 048
     Dates: start: 20250423, end: 20251015

REACTIONS (3)
  - Disease progression [Not Recovered/Not Resolved]
  - Infection [Not Recovered/Not Resolved]
  - Treatment failure [Not Recovered/Not Resolved]

NARRATIVE: CASE EVENT DATE: 20250501
